FAERS Safety Report 6991658-1 (Version None)
Quarter: 2010Q3

REPORT INFORMATION
  Report Type: 
  Country: None (occurrence: None)
  Receive Date: 20100914
  Receipt Date: 20100914
  Transmission Date: 20110219
  Serious: Yes (Life-Threatening)
  Sender: FDA-Public Use
  Company Number: None

PATIENT
  Sex: Female

DRUGS (1)
  1. GABAPENTIN [Suspect]
     Indication: NEURALGIA
     Dosage: 300MG 2 DAILY

REACTIONS (5)
  - DIPLOPIA [None]
  - DYSPNOEA [None]
  - EYE MOVEMENT DISORDER [None]
  - JOINT SWELLING [None]
  - VISION BLURRED [None]
